FAERS Safety Report 4583959-1 (Version None)
Quarter: 2005Q1

REPORT INFORMATION
  Report Type: 
  Country: None (occurrence: None)
  Receive Date: 20050216
  Receipt Date: 20050208
  Transmission Date: 20050727
  Serious: Yes (Hospitalization)
  Sender: FDA-Public Use
  Company Number: US-JNJFOC-20041200512

PATIENT
  Sex: Female

DRUGS (6)
  1. DURAGESIC-100 [Suspect]
     Route: 062
  2. DURAGESIC [Suspect]
     Route: 062
  3. PAXIL CR [Concomitant]
     Route: 049
  4. XANAX [Concomitant]
     Route: 049
  5. TYLENOL W/ CODEINE NO. 3 [Concomitant]
     Route: 049
  6. TYLENOL W/ CODEINE NO. 3 [Concomitant]
     Dosage: 1/DAY
     Route: 049

REACTIONS (8)
  - AKATHISIA [None]
  - COLD SWEAT [None]
  - DRUG WITHDRAWAL SYNDROME [None]
  - DYSPNOEA [None]
  - HYPERHIDROSIS [None]
  - HYPOVENTILATION [None]
  - INSOMNIA [None]
  - PANIC ATTACK [None]
